FAERS Safety Report 23359145 (Version 1)
Quarter: 2024Q1

REPORT INFORMATION
  Report Type: Spontaneous
  Country: US (occurrence: US)
  Receive Date: 20240102
  Receipt Date: 20240102
  Transmission Date: 20240410
  Serious: No
  Sender: FDA-Public Use
  Company Number: US-JNJFOC-20231273461

PATIENT
  Age: 7 Year
  Sex: Male

DRUGS (1)
  1. CONCERTA [Suspect]
     Active Substance: METHYLPHENIDATE HYDROCHLORIDE
     Indication: Attention deficit hyperactivity disorder
     Dosage: EVERY MORNING
     Route: 048
     Dates: start: 200807, end: 200807

REACTIONS (2)
  - Agitation [Unknown]
  - Tic [Unknown]

NARRATIVE: CASE EVENT DATE: 20080701
